FAERS Safety Report 10681028 (Version 1)
Quarter: 2014Q4

REPORT INFORMATION
  Report Type: Spontaneous
  Country: US (occurrence: US)
  Receive Date: 20141229
  Receipt Date: 20141229
  Transmission Date: 20150529
  Serious: No
  Sender: FDA-Public Use
  Company Number: US-BAUSCH-SYM-2014-19421

PATIENT
  Age: 54 Year
  Sex: Male

DRUGS (2)
  1. XENAZINE [Suspect]
     Active Substance: TETRABENAZINE
     Indication: HUNTINGTON^S DISEASE
     Dosage: 1 TABLET, 3 TIMES DAILY
     Route: 048
     Dates: start: 20131128, end: 20140311
  2. XENAZINE [Suspect]
     Active Substance: TETRABENAZINE
     Dosage: 2 TABLETS IN THE MORNING, 1 TABLET IN THE AFTERNOON AND 1 TABLET AT NIGHT
     Route: 048
     Dates: start: 20140312

REACTIONS (3)
  - Nasal discomfort [Unknown]
  - Movement disorder [Unknown]
  - Somnolence [Unknown]

NARRATIVE: CASE EVENT DATE: 201403
